FAERS Safety Report 5940791-1 (Version None)
Quarter: 2008Q4

REPORT INFORMATION
  Report Type: 
  Country: None (occurrence: None)
  Receive Date: 20081030
  Receipt Date: 20081015
  Transmission Date: 20090506
  Serious: Yes (Other)
  Sender: FDA-Public Use
  Company Number: 8038455

PATIENT
  Age: 39 Year
  Sex: Male

DRUGS (7)
  1. PREDNISOLONE [Suspect]
     Indication: CONJUNCTIVITIS
     Dates: start: 20040801
  2. PREDNISOLONE [Suspect]
     Indication: CONJUNCTIVITIS
     Dates: start: 20040901
  3. PREDNISOLONE [Suspect]
     Indication: CONJUNCTIVITIS
     Dates: start: 20051001
  4. AZATHIOPRINE [Suspect]
     Dates: start: 20040801, end: 20050501
  5. DAPSONE [Suspect]
     Indication: CONJUNCTIVITIS
     Dates: start: 20040101
  6. MYCOPHENOLATE SODIUM [Suspect]
     Indication: CONJUNCTIVITIS
     Dates: start: 20050501
  7. CYCLOPHOSPHAMIDE [Suspect]
     Indication: CONJUNCTIVITIS
     Dates: start: 20051001

REACTIONS (5)
  - ALPHA HAEMOLYTIC STREPTOCOCCAL INFECTION [None]
  - CONJUNCTIVITIS INFECTIVE [None]
  - REBOUND EFFECT [None]
  - THERAPEUTIC RESPONSE DECREASED [None]
  - ULCERATIVE KERATITIS [None]
